FAERS Safety Report 21067989 (Version 2)
Quarter: 2022Q3

REPORT INFORMATION
  Report Type: Spontaneous
  Country: US (occurrence: None)
  Receive Date: 20220712
  Receipt Date: 20220915
  Transmission Date: 20221027
  Serious: No
  Sender: FDA-Public Use
  Company Number: 2022A249406

PATIENT
  Sex: Male
  Weight: 104.3 kg

DRUGS (1)
  1. BYDUREON BCISE [Suspect]
     Active Substance: EXENATIDE
     Indication: Type 2 diabetes mellitus
     Route: 065

REACTIONS (8)
  - Needle issue [Unknown]
  - Injection site swelling [Unknown]
  - Injection site pain [Unknown]
  - Injection site nodule [Unknown]
  - Hypoacusis [Unknown]
  - Incorrect dose administered by product [Unknown]
  - Device malfunction [Unknown]
  - Device leakage [Unknown]
